FAERS Safety Report 25103656 (Version 1)
Quarter: 2025Q1

REPORT INFORMATION
  Report Type: Spontaneous
  Country: CN (occurrence: CN)
  Receive Date: 20250321
  Receipt Date: 20250321
  Transmission Date: 20250408
  Serious: Yes (Other)
  Sender: ROCHE
  Company Number: CN-ROCHE-10000231264

PATIENT
  Age: 50 Year
  Sex: Female
  Weight: 53 kg

DRUGS (2)
  1. TRASTUZUMAB [Suspect]
     Active Substance: TRASTUZUMAB
     Indication: Breast cancer
     Dosage: ACCORDING TO THE DESCRIPTION, THE PATIENT STARTED MEDICATION ON 21 AUG 2024
     Route: 042
     Dates: start: 20250210, end: 20250210
  2. LEUCOGEN [Concomitant]
     Active Substance: LEUCOGEN
     Route: 048

REACTIONS (3)
  - White blood cell count decreased [Unknown]
  - Granulocyte count decreased [Unknown]
  - Lymphocyte count decreased [Unknown]

NARRATIVE: CASE EVENT DATE: 20250303
